FAERS Safety Report 22239336 (Version 4)
Quarter: 2023Q2

REPORT INFORMATION
  Report Type: Report from Study
  Country: US (occurrence: US)
  Receive Date: 20230421
  Receipt Date: 20230623
  Transmission Date: 20230722
  Serious: Yes (Death, Life-Threatening, Hospitalization, Disabling)
  Sender: FDA-Public Use
  Company Number: US-GLAXOSMITHKLINE-US2023057650

PATIENT

DRUGS (9)
  1. DOSTARLIMAB [Suspect]
     Active Substance: DOSTARLIMAB
     Indication: Non-small cell lung cancer
     Dosage: DOSE AT CYCLE 1 - DAY 1
     Route: 042
     Dates: start: 20230124, end: 20230124
  2. DOSTARLIMAB [Suspect]
     Active Substance: DOSTARLIMAB
     Dosage: DOSE AT DAY 1
     Route: 042
     Dates: start: 20230214, end: 20230214
  3. DOSTARLIMAB [Suspect]
     Active Substance: DOSTARLIMAB
     Dosage: DOSE AT DAY 1
     Route: 042
     Dates: start: 20230307, end: 20230307
  4. DOSTARLIMAB [Suspect]
     Active Substance: DOSTARLIMAB
     Dosage: DOSE AT DAY 1
     Route: 042
     Dates: start: 20230328, end: 20230328
  5. PROVENTIL NEBULIZER SOLUTION (ALBUTEROL) [Concomitant]
     Indication: Wheezing
     Dosage: UNK MG
     Dates: start: 20230418, end: 20230418
  6. PROVENTIL NEBULIZER SOLUTION (ALBUTEROL) [Concomitant]
     Indication: Dyspnoea
     Dosage: UNK UNK, PRN
     Dates: start: 20230419, end: 20230517
  7. PANTOPRAZOLE [Concomitant]
     Active Substance: PANTOPRAZOLE
     Indication: Gastrooesophageal reflux disease
     Dosage: 40 MG, Z (DAILY, ADMINISTER IV PUSH IF PATIENT CANNOT SWALLOW PANTOPRAZOLE TABLETS)
     Route: 042
     Dates: start: 20230418, end: 20230516
  8. ROBINUL [Concomitant]
     Active Substance: GLYCOPYRROLATE
     Indication: Ill-defined disorder
     Dosage: 0.4 MG, PRN
     Route: 042
     Dates: start: 20230515, end: 20230517
  9. COLACE [Concomitant]
     Active Substance: DOCUSATE SODIUM
     Indication: Constipation
     Dosage: 100 MG, BID
     Route: 048
     Dates: start: 20230418, end: 20230517

REACTIONS (1)
  - Pneumonitis [Fatal]

NARRATIVE: CASE EVENT DATE: 20230410
